FAERS Safety Report 18627269 (Version 7)
Quarter: 2022Q1

REPORT INFORMATION
  Report Type: Spontaneous
  Country: ES (occurrence: ES)
  Receive Date: 20201217
  Receipt Date: 20220118
  Transmission Date: 20220424
  Serious: Yes (Life-Threatening, Hospitalization, Other)
  Sender: FDA-Public Use
  Company Number: ES-BRISTOL-MYERS SQUIBB COMPANY-BMS-2020-106348

PATIENT
  Age: 67 Year
  Sex: Male

DRUGS (18)
  1. DASATINIB [Suspect]
     Active Substance: DASATINIB
     Indication: Blast crisis in myelogenous leukaemia
     Dosage: 100 MILLIGRAM, QD
     Route: 065
  2. DASATINIB [Suspect]
     Active Substance: DASATINIB
     Indication: Leukaemia cutis
     Dosage: 100 MILLIGRAM
     Route: 065
  3. DASATINIB [Suspect]
     Active Substance: DASATINIB
     Dosage: 140 MILLIGRAM
     Route: 065
  4. HYDREA [Suspect]
     Active Substance: HYDROXYUREA
     Indication: Blast crisis in myelogenous leukaemia
     Dosage: CYCLICAL
     Route: 065
  5. HYDREA [Suspect]
     Active Substance: HYDROXYUREA
     Indication: Blast cell crisis
  6. HYDREA [Suspect]
     Active Substance: HYDROXYUREA
     Indication: Leukaemia cutis
  7. FLUDARABINE PHOSPHATE [Suspect]
     Active Substance: FLUDARABINE PHOSPHATE
     Indication: Blast crisis in myelogenous leukaemia
     Dosage: 30 MILLIGRAM PER SQ. METER, QCYCLE (DAYS 1 TO 4)
     Route: 042
  8. FLUDARABINE PHOSPHATE [Suspect]
     Active Substance: FLUDARABINE PHOSPHATE
     Indication: Leukaemia cutis
  9. FLUDARABINE PHOSPHATE [Suspect]
     Active Substance: FLUDARABINE PHOSPHATE
     Indication: Blast cell crisis
  10. CYTARABINE [Suspect]
     Active Substance: CYTARABINE
     Indication: Blast crisis in myelogenous leukaemia
     Dosage: 2 G/SQ.METER, DAY 1 TO 4
     Route: 042
  11. CYTARABINE [Suspect]
     Active Substance: CYTARABINE
     Indication: Leukaemia cutis
  12. CYTARABINE [Suspect]
     Active Substance: CYTARABINE
     Indication: Blast cell crisis
  13. IDARUBICIN [Suspect]
     Active Substance: IDARUBICIN
     Indication: Blast crisis in myelogenous leukaemia
     Dosage: 10 MILLIGRAM PER SQ. METER, QCYCLE (10 MG PER M2, DAYS 1 TO 3)
     Route: 042
  14. IDARUBICIN [Suspect]
     Active Substance: IDARUBICIN
     Indication: Blast cell crisis
  15. IDARUBICIN [Suspect]
     Active Substance: IDARUBICIN
     Indication: Leukaemia cutis
  16. GRANULOCYTE COLONY-STIMULATING FACTOR NOS [Concomitant]
     Active Substance: GRANULOCYTE COLONY-STIMULATING FACTOR NOS
     Indication: Prophylaxis
     Dosage: 300 UG/SQ.METER ON DAYS 1-5
     Route: 058
  17. GRANULOCYTE COLONY-STIMULATING FACTOR NOS [Concomitant]
     Active Substance: GRANULOCYTE COLONY-STIMULATING FACTOR NOS
     Indication: Blast crisis in myelogenous leukaemia
  18. CYTARABINE\FLUDARABINE\GRANULOCYTE COLONY-STIMULATING FACTOR NOS\IDARU [Concomitant]
     Active Substance: CYTARABINE\FLUDARABINE\GRANULOCYTE COLONY-STIMULATING FACTOR NOS\IDARUBICIN
     Indication: Blast cell crisis
     Dosage: UNK
     Route: 065

REACTIONS (7)
  - Neutropenia [Recovered/Resolved]
  - Thrombocytopenia [Recovered/Resolved]
  - Diarrhoea [Unknown]
  - Bronchopulmonary aspergillosis [Recovered/Resolved]
  - Staphylococcal bacteraemia [Recovered/Resolved]
  - Cytomegalovirus infection [Recovered/Resolved]
  - Cytomegalovirus infection reactivation [Recovering/Resolving]
